FAERS Safety Report 6470126-X (Version None)
Quarter: 2009Q4

REPORT INFORMATION
  Report Type: 
  Country: None (occurrence: None)
  Receive Date: 20091203
  Receipt Date: 20090525
  Transmission Date: 20100525
  Serious: Yes (Hospitalization, Other)
  Sender: FDA-Public Use
  Company Number: ES-ELI_LILLY_AND_COMPANY-ES200712002095

PATIENT
  Age: 24 Year
  Sex: Male

DRUGS (10)
  1. ZYPREXA [Suspect]
     Indication: SCHIZOPHRENIA, PARANOID TYPE
     Dosage: 10 MG, DAILY (1/D)
     Route: 048
     Dates: start: 20020129, end: 20020901
  2. ZYPREXA [Suspect]
     Dosage: 5 MG, DAILY (1/D)
     Route: 048
     Dates: start: 20020901, end: 20030601
  3. ZYPREXA [Suspect]
     Dosage: 20 MG, DAILY (1/D)
     Route: 048
     Dates: start: 20030601, end: 20031001
  4. ZYPREXA [Suspect]
     Dosage: 5 MG, DAILY (1/D)
     Route: 048
     Dates: start: 20031001, end: 20040401
  5. ZYPREXA [Suspect]
     Dosage: 10 MG, DAILY (1/D)
     Route: 048
     Dates: start: 20040401
  6. AMISULPRIDE [Concomitant]
     Dosage: 800 MG, DAILY (1/D)
     Dates: start: 20070101
  7. ARIPIPRAZOLE [Concomitant]
     Dosage: 10 MG, DAILY (1/D)
     Dates: start: 20070101, end: 20080201
  8. OXCARBAZEPINE [Concomitant]
     Dosage: 900 MG, DAILY (1/D)
     Dates: start: 20070101
  9. LORMETAZEPAM [Concomitant]
     Dosage: 1 MG, DAILY (1/D)
     Dates: start: 20070101
  10. ORFIDAL [Concomitant]

REACTIONS (3)
  - ASTHENIA [None]
  - ATRIOVENTRICULAR BLOCK SECOND DEGREE [None]
  - FATIGUE [None]
